FAERS Safety Report 6723327-7 (Version None)
Quarter: 2010Q2

REPORT INFORMATION
  Report Type: 
  Country: None (occurrence: None)
  Receive Date: 20100513
  Receipt Date: 20100511
  Transmission Date: 20101027
  Serious: Yes (Death)
  Sender: FDA-Public Use
  Company Number: GB-ASTRAZENECA-2010SE21277

PATIENT
  Age: 47 Year
  Sex: Male
  Weight: 127 kg

DRUGS (3)
  1. PULMICORT [Suspect]
     Indication: ASTHMA
     Route: 055
     Dates: start: 20020101
  2. GLYCYRRHIZA SPECIES [Interacting]
     Route: 048
  3. SALBUTAMOL [Concomitant]

REACTIONS (3)
  - COMPLETED SUICIDE [None]
  - DRUG INTERACTION [None]
  - MOOD ALTERED [None]
